FAERS Safety Report 6496483-6 (Version None)
Quarter: 2009Q4

REPORT INFORMATION
  Report Type: 
  Country: None (occurrence: None)
  Receive Date: 20091214
  Receipt Date: 20090507
  Transmission Date: 20100525
  Serious: Yes (Death, Hospitalization, Other)
  Sender: FDA-Public Use
  Company Number: HK-SANOFI-AVENTIS-D01200503558

PATIENT
  Age: 90 Year
  Sex: Male
  Weight: 66 kg

DRUGS (6)
  1. CLOPIDOGREL BISULFATE [Suspect]
     Indication: ATRIAL FIBRILLATION
     Dosage: UNIT DOSE: 75 MG
     Route: 048
     Dates: start: 20040419, end: 20050401
  2. BLINDED THERAPY [Concomitant]
     Indication: ATRIAL FIBRILLATION
     Dosage: DOSE TEXT: 150 MG/DAY FOR 2 WEEKS FOLLOWING BY 300 MG/DAYUNIT DOSE: 150 MG
     Route: 048
     Dates: start: 20040419, end: 20050401
  3. ASPIRIN [Concomitant]
     Indication: ATRIAL FIBRILLATION
     Route: 048
     Dates: start: 20040419, end: 20050401
  4. DIGOXIN [Concomitant]
  5. HYTRIN [Concomitant]
  6. PEPCIDIN [Concomitant]

REACTIONS (2)
  - GASTRIC CANCER [None]
  - UPPER GASTROINTESTINAL HAEMORRHAGE [None]
